FAERS Safety Report 9458289 (Version 1)
Quarter: 2013Q3

REPORT INFORMATION
  Report Type: Spontaneous
  Country: BR (occurrence: None)
  Receive Date: 20130812
  Receipt Date: 20130812
  Transmission Date: 20140515
  Serious: Yes (Other)
  Sender: FDA-Public Use
  Company Number: APOTEX INC.

PATIENT
  Age: 77 Year
  Sex: Female

DRUGS (4)
  1. ALENDRONATE (ALENDRONATE SODIUM) [Suspect]
  2. RISEDRONATE SODIUM HYDRATE [Suspect]
  3. CALCIUM CARBONATE [Suspect]
  4. CHOLECALCIFEROL [Suspect]

REACTIONS (4)
  - Tibia fracture [None]
  - Femur fracture [None]
  - Fall [None]
  - Impaired healing [None]
